FAERS Safety Report 17567663 (Version 1)
Quarter: 2020Q1

REPORT INFORMATION
  Report Type: Spontaneous
  Country: US (occurrence: US)
  Receive Date: 20200320
  Receipt Date: 20200320
  Transmission Date: 20200409
  Serious: Yes (Life-Threatening, Hospitalization, Other)
  Sender: FDA-Public Use
  Company Number: US-BAYER-2020-046404

PATIENT
  Age: 54 Year
  Sex: Female

DRUGS (3)
  1. CLOPIDOGREL [Interacting]
     Active Substance: CLOPIDOGREL BISULFATE
  2. ASPIRIN (CARDIO) [Suspect]
     Active Substance: ASPIRIN
  3. HEPARIN [Interacting]
     Active Substance: HEPARIN SODIUM

REACTIONS (6)
  - Vascular procedure complication [None]
  - Retroperitoneal haematoma [None]
  - Labelled drug-drug interaction medication error [None]
  - Deep vein thrombosis postoperative [None]
  - Puncture site haematoma [None]
  - Heparin-induced thrombocytopenia [None]
